FAERS Safety Report 5087547-2 (Version None)
Quarter: 2006Q3

REPORT INFORMATION
  Report Type: 
  Country: None (occurrence: None)
  Receive Date: 20060824
  Receipt Date: 20060811
  Transmission Date: 20061208
  Serious: Yes (Hospitalization)
  Sender: FDA-Public Use
  Company Number: PHHC2-011

PATIENT
  Age: 67 Year
  Sex: Male

DRUGS (3)
  1. NOGITECAN HYDROCHLORIDE [Suspect]
     Dosage: 1MGM2 PER DAY
     Route: 042
     Dates: start: 20060724
  2. CISPLATIN [Suspect]
     Dosage: 60MGM2 PER DAY
     Route: 042
     Dates: start: 20060728
  3. LENOGRASTIM [Concomitant]
     Dosage: 100MGM2 PER DAY
     Route: 058
     Dates: start: 20060729

REACTIONS (4)
  - FEBRILE NEUTROPENIA [None]
  - PLATELET COUNT DECREASED [None]
  - PYREXIA [None]
  - WHITE BLOOD CELL COUNT DECREASED [None]
